FAERS Safety Report 16159176 (Version 1)
Quarter: 2019Q2

REPORT INFORMATION
  Report Type: Spontaneous
  Country: US (occurrence: US)
  Receive Date: 20190404
  Receipt Date: 20190404
  Transmission Date: 20190711
  Serious: No
  Sender: FDA-Public Use
  Company Number: US-TEVA-2019-US-1023273

PATIENT
  Sex: Female

DRUGS (1)
  1. TRI-LO SPRINTEC [Suspect]
     Active Substance: ETHINYL ESTRADIOL\NORGESTIMATE
     Indication: CONTRACEPTION
     Dosage: 0.18/0.25; 0.215/0.035; 0.250/
     Dates: start: 2019

REACTIONS (4)
  - Abdominal distension [Unknown]
  - Product substitution issue [Unknown]
  - Dyspepsia [Unknown]
  - Weight increased [Unknown]

NARRATIVE: CASE EVENT DATE: 2019
